FAERS Safety Report 11209574 (Version 2)
Quarter: 2015Q3

REPORT INFORMATION
  Report Type: Spontaneous
  Country: US (occurrence: US)
  Receive Date: 20150622
  Receipt Date: 20150701
  Transmission Date: 20151125
  Serious: Yes (Hospitalization)
  Sender: FDA-Public Use
  Company Number: US-GUERBET LLC-1040110

PATIENT
  Age: 51 Year
  Sex: Female

DRUGS (3)
  1. BENADRYL [Interacting]
     Active Substance: DIPHENHYDRAMINE HYDROCHLORIDE
     Dates: start: 20150603, end: 20150603
  2. OXILAN [Suspect]
     Active Substance: IOXILAN
     Indication: COMPUTERISED TOMOGRAM
     Dates: start: 20150603, end: 20150603
  3. EPINEPHRINE. [Interacting]
     Active Substance: EPINEPHRINE
     Dates: start: 20150603, end: 20150603

REACTIONS (4)
  - Dyspnoea [Unknown]
  - Hypoaesthesia oral [Recovered/Resolved]
  - Oral pruritus [Recovered/Resolved]
  - Throat tightness [Recovered/Resolved]

NARRATIVE: CASE EVENT DATE: 20150603
